FAERS Safety Report 8054140-9 (Version None)
Quarter: 2012Q1

REPORT INFORMATION
  Report Type: 
  Country: None (occurrence: None)
  Receive Date: 20120118
  Receipt Date: 20120117
  Transmission Date: 20120608
  Serious: Yes (Other)
  Sender: FDA-Public Use
  Company Number: ES-PFIZER INC-2012012800

PATIENT
  Sex: Male

DRUGS (3)
  1. ATORVASTATIN CALCIUM [Suspect]
     Dosage: 10 MG, 1X/DAY
     Dates: start: 20101201, end: 20110301
  2. VALSARTAN [Concomitant]
     Dosage: UNK
     Dates: start: 20101001
  3. ATORVASTATIN CALCIUM [Suspect]
     Dosage: 20 MG, 1X/DAY
     Route: 048
     Dates: start: 20110505, end: 20110629

REACTIONS (6)
  - HYPERSENSITIVITY [None]
  - HYPOTENSION [None]
  - VISION BLURRED [None]
  - PRURITUS [None]
  - TREMOR [None]
  - LACRIMATION INCREASED [None]
